FAERS Safety Report 11704993 (Version 25)
Quarter: 2025Q1

REPORT INFORMATION
  Report Type: Spontaneous
  Country: FR (occurrence: FR)
  Receive Date: 20151106
  Receipt Date: 20250207
  Transmission Date: 20250408
  Serious: Yes (Death, Hospitalization, Other)
  Sender: BAUSCH AND LOMB
  Company Number: FR-BAUSCH-BL-2015-026253

PATIENT
  Age: 71 Year
  Sex: Male

DRUGS (165)
  1. ALBUTEROL [Suspect]
     Active Substance: ALBUTEROL
     Indication: Product used for unknown indication
     Route: 045
  2. ALBUTEROL [Suspect]
     Active Substance: ALBUTEROL
     Route: 065
  3. ALBUTEROL [Suspect]
     Active Substance: ALBUTEROL
     Dosage: 1 DOSAGE FORM, BID
     Route: 045
  4. ALBUTEROL [Suspect]
     Active Substance: ALBUTEROL
     Dosage: (2 DOSAGE FORM QD)
     Route: 045
  5. ALBUTEROL [Suspect]
     Active Substance: ALBUTEROL
     Dosage: UNK
     Route: 065
  6. NITROGLYCERIN [Suspect]
     Active Substance: NITROGLYCERIN
     Indication: Product used for unknown indication
     Route: 062
  7. NITROGLYCERIN [Suspect]
     Active Substance: NITROGLYCERIN
     Dosage: (3 REGIMENS)
     Route: 062
  8. NITROGLYCERIN [Suspect]
     Active Substance: NITROGLYCERIN
     Route: 062
  9. NITROGLYCERIN [Suspect]
     Active Substance: NITROGLYCERIN
     Dosage: UNKNOWN
     Route: 062
  10. RIVOTRIL [Suspect]
     Active Substance: CLONAZEPAM
     Indication: Product used for unknown indication
     Dosage: 4 MILLIGRAM, QD
     Route: 048
  11. ALBUTEROL [Suspect]
     Active Substance: ALBUTEROL
     Indication: Product used for unknown indication
     Route: 045
  12. ALBUTEROL [Suspect]
     Active Substance: ALBUTEROL
     Dosage: 1 DOSAGE FORM BID (2 REGIMENS)
     Route: 045
  13. ALBUTEROL [Suspect]
     Active Substance: ALBUTEROL
     Route: 065
  14. OMEPRAZOLE [Suspect]
     Active Substance: OMEPRAZOLE
     Indication: Product used for unknown indication
     Dosage: 20 MG,QD
     Route: 048
  15. OMEPRAZOLE [Suspect]
     Active Substance: OMEPRAZOLE
     Dosage: 20 MILLIGRAM, QD
     Route: 048
  16. OMEPRAZOLE [Suspect]
     Active Substance: OMEPRAZOLE
     Dosage: OMEPRAZOLE MAGNESIUM
     Route: 048
  17. OMEPRAZOLE [Suspect]
     Active Substance: OMEPRAZOLE
     Dosage: OMEPRAZOLE MAGNESIUM
     Route: 048
  18. OMEPRAZOLE [Suspect]
     Active Substance: OMEPRAZOLE
     Route: 048
  19. OMEPRAZOLE [Suspect]
     Active Substance: OMEPRAZOLE
     Dosage: 20 MILLIGRAM, QD
     Route: 048
  20. OMEPRAZOLE [Suspect]
     Active Substance: OMEPRAZOLE
     Route: 065
  21. OMEPRAZOLE [Suspect]
     Active Substance: OMEPRAZOLE
     Dosage: (4 REGIMENS)
     Route: 048
  22. ACETAMINOPHEN [Suspect]
     Active Substance: ACETAMINOPHEN
     Indication: Product used for unknown indication
     Dosage: 100 MG, BID (ONCE EVERY 12 HOURS)
     Route: 048
  23. ACETAMINOPHEN [Suspect]
     Active Substance: ACETAMINOPHEN
     Dosage: 1000 MG, BID (1000 MG, 2X/DAY)
     Route: 048
  24. ACETAMINOPHEN [Suspect]
     Active Substance: ACETAMINOPHEN
     Route: 048
  25. ACETAMINOPHEN [Suspect]
     Active Substance: ACETAMINOPHEN
     Route: 048
  26. ACETAMINOPHEN [Suspect]
     Active Substance: ACETAMINOPHEN
     Route: 048
  27. ACETAMINOPHEN [Suspect]
     Active Substance: ACETAMINOPHEN
     Route: 048
  28. ACETAMINOPHEN [Suspect]
     Active Substance: ACETAMINOPHEN
     Dosage: 200 MG, BID (0.5 DAY 400 MG QD)
     Route: 048
  29. POLYETHYLENE GLYCOL 3350 [Suspect]
     Active Substance: POLYETHYLENE GLYCOL 3350
     Indication: Product used for unknown indication
     Dosage: 2 DOSAGE FORM DAILY, 2 DOSAGE FORM, QD
     Route: 048
  30. ZOPICLONE [Suspect]
     Active Substance: ZOPICLONE
     Indication: Product used for unknown indication
     Dosage: 15 MG, QD (2 REGIMENS)
     Route: 048
  31. ZOCOR [Suspect]
     Active Substance: SIMVASTATIN
     Indication: Product used for unknown indication
     Dosage: 20 MILLIGRAM, QD
     Route: 048
  32. MIANSERIN HYDROCHLORIDE [Suspect]
     Active Substance: MIANSERIN HYDROCHLORIDE
     Indication: Product used for unknown indication
     Dosage: 60 MG, QD (MIANSERIN) (3 REGIMENS)
     Route: 048
  33. PROPRANOLOL [Suspect]
     Active Substance: PROPRANOLOL HYDROCHLORIDE
     Indication: Product used for unknown indication
     Dosage: 20 MG,QD
     Route: 048
  34. PROPRANOLOL [Suspect]
     Active Substance: PROPRANOLOL HYDROCHLORIDE
     Dosage: 100 MG, BID (100 MG, Q12H)
     Route: 048
  35. PROPRANOLOL [Suspect]
     Active Substance: PROPRANOLOL HYDROCHLORIDE
     Dosage: 200 MG, QD (100 MILLIGRAM BID)
     Route: 048
  36. PROPRANOLOL [Suspect]
     Active Substance: PROPRANOLOL HYDROCHLORIDE
     Dosage: UNK, BID
     Route: 048
  37. CLOBAZAM [Suspect]
     Active Substance: CLOBAZAM
     Indication: Product used for unknown indication
     Dosage: 10 MG, TID (ONCE EVERY 8HOURS) (2 REGIMEN)
     Route: 048
  38. CLOBAZAM [Suspect]
     Active Substance: CLOBAZAM
     Route: 048
  39. CLOBAZAM [Suspect]
     Active Substance: CLOBAZAM
     Dosage: 30 MG, QD (10 MG 3X/DAY)
     Route: 048
  40. CLOBAZAM [Suspect]
     Active Substance: CLOBAZAM
     Dosage: (2 REGIMENS)
     Route: 048
  41. CLOBAZAM [Suspect]
     Active Substance: CLOBAZAM
     Route: 048
  42. CLOBAZAM [Suspect]
     Active Substance: CLOBAZAM
     Route: 048
  43. CLOBAZAM [Suspect]
     Active Substance: CLOBAZAM
     Route: 048
  44. CLOBAZAM [Suspect]
     Active Substance: CLOBAZAM
     Route: 048
  45. CLOBAZAM [Suspect]
     Active Substance: CLOBAZAM
     Dosage: UNK, QD (FREQUENCY TIME 1, UNIT: DAYS)
     Route: 048
  46. LASIX [Suspect]
     Active Substance: FUROSEMIDE
     Indication: Product used for unknown indication
     Dosage: 40 MILLIGRAM, QD
     Route: 048
  47. ISOPTIN [Suspect]
     Active Substance: VERAPAMIL HYDROCHLORIDE
     Indication: Product used for unknown indication
     Route: 048
  48. CELEBREX [Suspect]
     Active Substance: CELECOXIB
     Indication: Product used for unknown indication
     Route: 065
  49. PIPAMPERONE [Suspect]
     Active Substance: PIPAMPERONE
     Indication: Product used for unknown indication
     Dosage: 20 MILLIGRAM, QD (2 REGIMENS)
     Route: 048
  50. PIPAMPERONE [Suspect]
     Active Substance: PIPAMPERONE
     Dosage: 20 MG, QD
     Route: 048
  51. TRIHEXYPHENIDYL HYDROCHLORIDE [Suspect]
     Active Substance: TRIHEXYPHENIDYL HYDROCHLORIDE
     Indication: Product used for unknown indication
     Dosage: 1 DF,QD
     Route: 048
  52. TRIHEXYPHENIDYL HYDROCHLORIDE [Suspect]
     Active Substance: TRIHEXYPHENIDYL HYDROCHLORIDE
     Dosage: UNK UNK, QD
     Route: 048
  53. SEREVENT DISKUS [Suspect]
     Active Substance: SALMETEROL XINAFOATE
     Indication: Product used for unknown indication
     Dosage: 1 DOSAGE FORM, Q12H, 1 DF,BID (1 PUFF)
     Route: 045
  54. SEREVENT DISKUS [Suspect]
     Active Substance: SALMETEROL XINAFOATE
     Route: 045
  55. SEREVENT DISKUS [Suspect]
     Active Substance: SALMETEROL XINAFOATE
     Dosage: 2 DOSAGE FORM, BID (2 REGIMENS)
     Route: 045
  56. SEREVENT DISKUS [Suspect]
     Active Substance: SALMETEROL XINAFOATE
     Dosage: 2 DOSAGE FORM, BID (2 DF, Q12H)
     Route: 045
  57. DIACEREIN [Suspect]
     Active Substance: DIACEREIN
     Indication: Product used for unknown indication
     Dosage: 50 MG, 2X/DAY (ONCE EVERY 12HOURS)
     Route: 048
  58. DIACEREIN [Suspect]
     Active Substance: DIACEREIN
     Dosage: 100 MG, BID
     Route: 048
  59. DIACEREIN [Suspect]
     Active Substance: DIACEREIN
     Route: 048
  60. DIACEREIN [Suspect]
     Active Substance: DIACEREIN
     Dosage: 200 MG, QD (100 MILLIGRAM, BID)
     Route: 048
  61. ESOMEPRAZOLE MAGNESIUM [Suspect]
     Active Substance: ESOMEPRAZOLE MAGNESIUM
     Indication: Product used for unknown indication
     Dosage: ESOMEPRAZOLE MAGNESIUM
     Route: 048
  62. ESOMEPRAZOLE MAGNESIUM [Suspect]
     Active Substance: ESOMEPRAZOLE MAGNESIUM
     Dosage: 20 MILLIGRAM, QD (ESOMEPRAZOLE DCI)
     Route: 048
  63. ESOMEPRAZOLE MAGNESIUM [Suspect]
     Active Substance: ESOMEPRAZOLE MAGNESIUM
     Route: 048
  64. ESOMEPRAZOLE MAGNESIUM [Suspect]
     Active Substance: ESOMEPRAZOLE MAGNESIUM
     Route: 048
  65. ESOMEPRAZOLE MAGNESIUM [Suspect]
     Active Substance: ESOMEPRAZOLE MAGNESIUM
     Route: 048
  66. ESOMEPRAZOLE MAGNESIUM [Suspect]
     Active Substance: ESOMEPRAZOLE MAGNESIUM
     Route: 048
  67. ASPIRIN LYSINE [Suspect]
     Active Substance: ASPIRIN LYSINE
     Indication: Product used for unknown indication
     Route: 048
  68. ASPIRIN LYSINE [Suspect]
     Active Substance: ASPIRIN LYSINE
     Route: 048
  69. SALMETEROL XINAFOATE [Suspect]
     Active Substance: SALMETEROL XINAFOATE
     Indication: Product used for unknown indication
     Route: 045
  70. SALMETEROL XINAFOATE [Suspect]
     Active Substance: SALMETEROL XINAFOATE
     Dosage: 2 DOSAGE FORM, QD 1 DF,BID (1 PUFF) (ONCE EVERY 12HOURS)
     Route: 045
  71. SALMETEROL XINAFOATE [Suspect]
     Active Substance: SALMETEROL XINAFOATE
     Dosage: UNK, BID (1 PUFF)
     Route: 045
  72. SALMETEROL XINAFOATE [Suspect]
     Active Substance: SALMETEROL XINAFOATE
     Dosage: 1 DOSAGE FORM, 2/DAY, 0.50 DAILY
     Route: 045
  73. NITROGLYCERIN [Suspect]
     Active Substance: NITROGLYCERIN
     Indication: Product used for unknown indication
     Route: 062
  74. NITROGLYCERIN [Suspect]
     Active Substance: NITROGLYCERIN
     Route: 062
  75. NITROGLYCERIN [Suspect]
     Active Substance: NITROGLYCERIN
     Route: 065
  76. NITROGLYCERIN [Suspect]
     Active Substance: NITROGLYCERIN
     Route: 065
  77. NITROGLYCERIN [Suspect]
     Active Substance: NITROGLYCERIN
     Route: 048
  78. PREDNAZOLINE [Suspect]
     Active Substance: PREDNAZOLINE
     Indication: Product used for unknown indication
     Dosage: 1 PUFF, (1 DF, QD) (1 PUFF, QD)
     Route: 045
  79. PREDNAZOLINE [Suspect]
     Active Substance: PREDNAZOLINE
     Dosage: 1 DF, QD
     Route: 045
  80. PREDNAZOLINE [Suspect]
     Active Substance: PREDNAZOLINE
     Dosage: 1 PUFF, QD
     Route: 045
  81. PREDNAZOLINE [Suspect]
     Active Substance: PREDNAZOLINE
     Route: 045
  82. PREDNAZOLINE [Suspect]
     Active Substance: PREDNAZOLINE
     Dosage: 1 DF, QD
     Route: 045
  83. ASPIRIN DL-LYSINE [Suspect]
     Active Substance: ASPIRIN DL-LYSINE
     Indication: Product used for unknown indication
     Dosage: 250 MILLIGRAM, QD
     Route: 048
  84. ASPIRIN DL-LYSINE [Suspect]
     Active Substance: ASPIRIN DL-LYSINE
     Dosage: 20 MILLIGRAM, QD
     Route: 048
  85. ASPIRIN DL-LYSINE [Suspect]
     Active Substance: ASPIRIN DL-LYSINE
     Dosage: 250 MILLIGRAM, QD
     Route: 048
  86. ASPIRIN DL-LYSINE [Suspect]
     Active Substance: ASPIRIN DL-LYSINE
     Dosage: 20 MILLIGRAM, QD
     Route: 048
  87. POLYETHYLENE GLYCOL 3350 [Suspect]
     Active Substance: POLYETHYLENE GLYCOL 3350
     Indication: Product used for unknown indication
     Route: 048
  88. POLYETHYLENE GLYCOL 3350 [Suspect]
     Active Substance: POLYETHYLENE GLYCOL 3350
     Route: 065
  89. POLYETHYLENE GLYCOL 3350 [Suspect]
     Active Substance: POLYETHYLENE GLYCOL 3350
     Route: 048
  90. POLYETHYLENE GLYCOL 3350 [Suspect]
     Active Substance: POLYETHYLENE GLYCOL 3350
     Route: 048
  91. POLYETHYLENE GLYCOL 3350 [Suspect]
     Active Substance: POLYETHYLENE GLYCOL 3350
     Route: 065
  92. CLONAZEPAM [Suspect]
     Active Substance: CLONAZEPAM
     Indication: Product used for unknown indication
     Dosage: 4 MG,QD
     Route: 048
  93. CLONAZEPAM [Suspect]
     Active Substance: CLONAZEPAM
     Dosage: 30 MG,QD
     Route: 048
  94. CLONAZEPAM [Suspect]
     Active Substance: CLONAZEPAM
     Dosage: UNKNOWN
     Route: 048
  95. CLONAZEPAM [Suspect]
     Active Substance: CLONAZEPAM
     Dosage: 30 MG,QD
     Route: 048
  96. FUROSEMIDE [Suspect]
     Active Substance: FUROSEMIDE
     Indication: Product used for unknown indication
     Dosage: 40 MG, QD (3 REGIMENS)
     Route: 048
  97. ACETAMINOPHEN [Suspect]
     Active Substance: ACETAMINOPHEN
     Indication: Product used for unknown indication
     Dosage: 1000 MG, BID
     Route: 048
  98. ACETAMINOPHEN [Suspect]
     Active Substance: ACETAMINOPHEN
     Dosage: (2 REGIMENS)
     Route: 048
  99. ACETAMINOPHEN [Suspect]
     Active Substance: ACETAMINOPHEN
     Route: 048
  100. ACETAMINOPHEN [Suspect]
     Active Substance: ACETAMINOPHEN
     Route: 048
  101. ACETAMINOPHEN [Suspect]
     Active Substance: ACETAMINOPHEN
     Route: 048
  102. ACETAMINOPHEN [Suspect]
     Active Substance: ACETAMINOPHEN
     Dosage: 1000 MILLIGRAM, Q12H
     Route: 048
  103. ACETAMINOPHEN [Suspect]
     Active Substance: ACETAMINOPHEN
     Route: 048
  104. ACETAMINOPHEN [Suspect]
     Active Substance: ACETAMINOPHEN
     Route: 048
  105. ACETAMINOPHEN [Suspect]
     Active Substance: ACETAMINOPHEN
     Dosage: 2000 MG,QD
     Route: 048
  106. ACETAMINOPHEN [Suspect]
     Active Substance: ACETAMINOPHEN
     Dosage: 1000 MILLIGRAM PER DECILITRE, BID ((1000 MG, 2X/DAY (ONCE EVERY 12HOURS)); ORAL USE
     Route: 048
  107. ACETAMINOPHEN [Suspect]
     Active Substance: ACETAMINOPHEN
     Route: 048
  108. ACETAMINOPHEN [Suspect]
     Active Substance: ACETAMINOPHEN
     Route: 048
  109. ASPIRIN DL-LYSINE\GLYCINE [Suspect]
     Active Substance: ASPIRIN DL-LYSINE\GLYCINE
     Indication: Product used for unknown indication
     Route: 048
  110. ASPIRIN DL-LYSINE\GLYCINE [Suspect]
     Active Substance: ASPIRIN DL-LYSINE\GLYCINE
     Dosage: 20 MG,QD, ACETYLSALICYLATE LYSINE
     Route: 048
  111. ASPIRIN DL-LYSINE\GLYCINE [Suspect]
     Active Substance: ASPIRIN DL-LYSINE\GLYCINE
     Route: 065
  112. ASPIRIN [Suspect]
     Active Substance: ASPIRIN
     Indication: Product used for unknown indication
     Dosage: 20 MG,QD (3 REGIMENS)
     Route: 048
  113. ASPIRIN [Suspect]
     Active Substance: ASPIRIN
     Dosage: (2 REGIMENS)
     Route: 048
  114. ASPIRIN [Suspect]
     Active Substance: ASPIRIN
     Dosage: (3 REGIMENS)
     Route: 048
  115. ASPIRIN [Suspect]
     Active Substance: ASPIRIN
     Route: 048
  116. ASPIRIN [Suspect]
     Active Substance: ASPIRIN
     Route: 065
  117. CELECOXIB [Suspect]
     Active Substance: CELECOXIB
     Indication: Product used for unknown indication
     Route: 065
  118. CELECOXIB [Suspect]
     Active Substance: CELECOXIB
     Route: 065
  119. CELECOXIB [Suspect]
     Active Substance: CELECOXIB
     Route: 065
  120. CELECOXIB [Suspect]
     Active Substance: CELECOXIB
     Route: 065
  121. CELECOXIB [Suspect]
     Active Substance: CELECOXIB
     Route: 065
  122. VERAPAMIL HYDROCHLORIDE [Suspect]
     Active Substance: VERAPAMIL HYDROCHLORIDE
     Indication: Product used for unknown indication
     Dosage: 240 MG,QD
     Route: 048
  123. VERAPAMIL HYDROCHLORIDE [Suspect]
     Active Substance: VERAPAMIL HYDROCHLORIDE
     Route: 065
  124. VERAPAMIL HYDROCHLORIDE [Suspect]
     Active Substance: VERAPAMIL HYDROCHLORIDE
     Dosage: 240 MG,QD
     Route: 048
  125. VERAPAMIL HYDROCHLORIDE [Suspect]
     Active Substance: VERAPAMIL HYDROCHLORIDE
     Dosage: UNKNOWN
     Route: 048
  126. SIMVASTATIN [Suspect]
     Active Substance: SIMVASTATIN
     Indication: Product used for unknown indication
     Dosage: 20 MG, QD
     Route: 048
  127. SIMVASTATIN [Suspect]
     Active Substance: SIMVASTATIN
     Dosage: 20 MG, QD (2 REGIMENS)
     Route: 048
  128. SIMVASTATIN [Suspect]
     Active Substance: SIMVASTATIN
     Route: 048
  129. CLOBAZAM [Suspect]
     Active Substance: CLOBAZAM
     Indication: Product used for unknown indication
     Dosage: (2 REGIMENS)
     Route: 048
  130. CLOBAZAM [Suspect]
     Active Substance: CLOBAZAM
     Route: 048
  131. CLOBAZAM [Suspect]
     Active Substance: CLOBAZAM
     Dosage: (2 REGIMENS)
     Route: 048
  132. CLOBAZAM [Suspect]
     Active Substance: CLOBAZAM
     Dosage: 30 MG, QD (10 MILLIGRAM TID); ORAL USE) (2 REGIMENS)
     Route: 048
  133. CLOBAZAM [Suspect]
     Active Substance: CLOBAZAM
     Route: 048
  134. CLOBAZAM [Suspect]
     Active Substance: CLOBAZAM
     Dosage: 30 MG, QD (10 MILLIGRAM TID (3X/DAY (ONCE EVERY 8HOURS)); ORAL USE
     Route: 048
  135. ASPIRIN [Suspect]
     Active Substance: ASPIRIN
     Indication: Product used for unknown indication
     Dosage: 250 MG, QD
     Route: 048
  136. ASPIRIN DL-LYSINE [Suspect]
     Active Substance: ASPIRIN DL-LYSINE
     Indication: Product used for unknown indication
     Dosage: 20 MG, QD
     Route: 048
  137. ASPIRIN DL-LYSINE [Suspect]
     Active Substance: ASPIRIN DL-LYSINE
     Dosage: 250 MG, QD
     Route: 048
  138. ASPIRIN DL-LYSINE [Suspect]
     Active Substance: ASPIRIN DL-LYSINE
     Route: 048
  139. NITROGLYCERIN [Suspect]
     Active Substance: NITROGLYCERIN
     Indication: Product used for unknown indication
     Dosage: 10 MILLIGRAM, 1/DAY (2 REGIMENS)
     Route: 065
  140. NITROGLYCERIN [Suspect]
     Active Substance: NITROGLYCERIN
     Dosage: 10 MG, QD
     Route: 048
  141. NITROGLYCERIN [Suspect]
     Active Substance: NITROGLYCERIN
     Dosage: 10 MG, QD (2 REGIMEN)
     Route: 065
  142. NITROGLYCERIN [Suspect]
     Active Substance: NITROGLYCERIN
     Route: 065
  143. ALTACE [Suspect]
     Active Substance: RAMIPRIL
     Indication: Product used for unknown indication
     Route: 048
  144. ALTACE [Suspect]
     Active Substance: RAMIPRIL
     Route: 048
  145. ALTACE [Suspect]
     Active Substance: RAMIPRIL
     Dosage: UNKNOWN
     Route: 048
  146. ALTACE [Suspect]
     Active Substance: RAMIPRIL
     Route: 048
  147. RAMIPRIL [Suspect]
     Active Substance: RAMIPRIL
     Indication: Product used for unknown indication
     Route: 048
  148. TREMIN [Suspect]
     Active Substance: TRIHEXYPHENIDYL HYDROCHLORIDE
     Indication: Product used for unknown indication
     Dosage: (3 REGIMENS)
     Route: 048
  149. TREMIN [Suspect]
     Active Substance: TRIHEXYPHENIDYL HYDROCHLORIDE
     Route: 048
  150. PREDNISOLONE [Suspect]
     Active Substance: PREDNISOLONE
     Indication: Product used for unknown indication
     Dosage: 1 DF, QD (1 DF, 1X/DAY/1 PUFF, QD)
     Route: 045
  151. PREDNISOLONE [Suspect]
     Active Substance: PREDNISOLONE
     Dosage: 1 DF, QD (6 ADMINISTRATIONS GIVEN)
     Route: 045
  152. PROPAFENONE HYDROCHLORIDE [Suspect]
     Active Substance: PROPAFENONE HYDROCHLORIDE
     Indication: Product used for unknown indication
     Route: 048
  153. PROPAFENONE HYDROCHLORIDE [Suspect]
     Active Substance: PROPAFENONE HYDROCHLORIDE
     Route: 048
  154. ASPIRIN DL-LYSINE [Suspect]
     Active Substance: ASPIRIN DL-LYSINE
     Indication: Product used for unknown indication
     Route: 048
  155. OXYMETAZOLINE HYDROCHLORIDE\PREDNISOLONE SODIUM PHOSPHATE [Suspect]
     Active Substance: OXYMETAZOLINE HYDROCHLORIDE\PREDNISOLONE SODIUM PHOSPHATE
     Indication: Product used for unknown indication
     Route: 045
  156. CELECOXIB [Suspect]
     Active Substance: CELECOXIB
     Indication: Product used for unknown indication
     Route: 065
  157. NITROGLYCERIN [Suspect]
     Active Substance: NITROGLYCERIN
     Indication: Product used for unknown indication
     Route: 048
  158. NITROGLYCERIN [Suspect]
     Active Substance: NITROGLYCERIN
     Route: 065
  159. NITROGLYCERIN [Suspect]
     Active Substance: NITROGLYCERIN
     Route: 065
  160. POLYETHYLENE GLYCOL 3350 [Suspect]
     Active Substance: POLYETHYLENE GLYCOL 3350
     Indication: Product used for unknown indication
     Dosage: 2 DOSAGE FORM, QD
     Route: 048
  161. OMEPRAZOLE [Suspect]
     Active Substance: OMEPRAZOLE
     Indication: Product used for unknown indication
     Dosage: 20 MG, QD (2 REGIMENS)
     Route: 048
  162. PREDNAZOLINE [Suspect]
     Active Substance: PREDNAZOLINE
     Indication: Product used for unknown indication
     Dosage: 1 PUFF QD (6 REGIMENS)
     Route: 045
  163. OXYGEN [Concomitant]
     Active Substance: OXYGEN
     Indication: Product used for unknown indication
  164. PREDNAZOLINE [Concomitant]
     Active Substance: PREDNAZOLINE
     Indication: Product used for unknown indication
  165. OXYCODONE HYDROCHLORIDE\OXYCODONE TEREPHTHALATE [Concomitant]
     Active Substance: OXYCODONE HYDROCHLORIDE\OXYCODONE TEREPHTHALATE
     Indication: Product used for unknown indication

REACTIONS (13)
  - Cerebral artery thrombosis [Fatal]
  - Ischaemic stroke [Fatal]
  - Nausea [Fatal]
  - Respiratory distress [Fatal]
  - Respiratory failure [Fatal]
  - Areflexia [Fatal]
  - Brain scan abnormal [Fatal]
  - Hemiplegia [Fatal]
  - Cerebrovascular accident [Fatal]
  - Disease recurrence [Fatal]
  - Facial paralysis [Fatal]
  - Product use issue [Fatal]
  - Off label use [Fatal]
